FAERS Safety Report 5168478-6 (Version None)
Quarter: 2006Q4

REPORT INFORMATION
  Report Type: 
  Country: None (occurrence: None)
  Receive Date: 20061208
  Receipt Date: 20061127
  Transmission Date: 20070319
  Serious: Yes (Other)
  Sender: FDA-Public Use
  Company Number: FR-ROCHE-473361

PATIENT
  Sex: Male

DRUGS (2)
  1. INTERFERON ALFA [Suspect]
     Indication: HEPATITIS C
     Route: 065
     Dates: start: 20000615, end: 20000615
  2. RIBAVIRIN [Concomitant]
     Indication: HEPATITIS C
     Dosage: AFTER 6 MONTHS OF THERAPY, RIBAVIRIN WAS STOPPED IN 2000 AND RESTARTED ON 14 NOV 2005.
     Route: 065
     Dates: start: 20000615

REACTIONS (2)
  - DENTAL CARIES [None]
  - THERAPY NON-RESPONDER [None]
